FAERS Safety Report 19623309 (Version 3)
Quarter: 2021Q3

REPORT INFORMATION
  Report Type: Spontaneous
  Country: US (occurrence: US)
  Receive Date: 20210729
  Receipt Date: 20210927
  Transmission Date: 20211014
  Serious: Yes (Hospitalization, Other)
  Sender: FDA-Public Use
  Company Number: US-SUN PHARMACEUTICAL INDUSTRIES LTD-2021R1-302973

PATIENT
  Age: 62 Year
  Sex: Female
  Weight: 79.37 kg

DRUGS (4)
  1. TADALAFIL. [Concomitant]
     Active Substance: TADALAFIL
     Indication: PRODUCT USED FOR UNKNOWN INDICATION
     Dosage: UNK
     Route: 065
  2. EPOPROSTENOL. [Suspect]
     Active Substance: EPOPROSTENOL
     Indication: PULMONARY ARTERIAL HYPERTENSION
     Dosage: 44.5 NG/KG/MIN CONTINUOUS
     Route: 042
     Dates: start: 20210409
  3. ELIQUIS [Concomitant]
     Active Substance: APIXABAN
     Indication: PRODUCT USED FOR UNKNOWN INDICATION
     Dosage: UNK
     Route: 065
  4. EPOPROSTENOL. [Suspect]
     Active Substance: EPOPROSTENOL
     Dosage: 40.5 NG/KG/MIN CONTINUOUS
     Route: 042
     Dates: start: 20210409

REACTIONS (12)
  - Tooth infection [Unknown]
  - Weight decreased [Unknown]
  - Alopecia [Unknown]
  - Tooth abscess [Unknown]
  - Decreased appetite [Unknown]
  - Rash [Unknown]
  - Pain [Unknown]
  - Fatigue [Unknown]
  - Fluid retention [Unknown]
  - Pain in jaw [Unknown]
  - Skin discolouration [Unknown]
  - Facial pain [Unknown]

NARRATIVE: CASE EVENT DATE: 202007
